FAERS Safety Report 15049672 (Version 1)
Quarter: 2018Q2

REPORT INFORMATION
  Report Type: Spontaneous
  Country: US (occurrence: US)
  Receive Date: 20180622
  Receipt Date: 20180622
  Transmission Date: 20180711
  Serious: No
  Sender: FDA-Public Use
  Company Number: US-ADAMAS PHARMA, LLC-2018ADA00216

PATIENT
  Age: 52 Year
  Sex: Male
  Weight: 74.83 kg

DRUGS (5)
  1. GOCOVRI [Suspect]
     Active Substance: AMANTADINE
     Indication: PARKINSON^S DISEASE
     Dosage: 137 MG, 1X/DAY AT NIGHT
     Route: 048
     Dates: start: 20180301, end: 20180305
  2. COQ 10 [Concomitant]
     Active Substance: UBIDECARENONE
  3. DULOXETINE. [Concomitant]
     Active Substance: DULOXETINE
  4. ACETAMINOPHEN. [Concomitant]
     Active Substance: ACETAMINOPHEN
  5. RASAGILINE. [Concomitant]
     Active Substance: RASAGILINE

REACTIONS (12)
  - Pain [Unknown]
  - Dizziness [Recovered/Resolved]
  - Peripheral swelling [Recovered/Resolved]
  - Balance disorder [Recovered/Resolved]
  - Neck injury [Unknown]
  - Muscle spasms [Unknown]
  - Vein discolouration [Recovered/Resolved]
  - Fall [Unknown]
  - Tremor [Not Recovered/Not Resolved]
  - Musculoskeletal discomfort [Unknown]
  - Nerve compression [Unknown]
  - Malaise [Unknown]

NARRATIVE: CASE EVENT DATE: 201803
